FAERS Safety Report 8366299-4 (Version None)
Quarter: 2012Q2

REPORT INFORMATION
  Report Type: 
  Country: None (occurrence: None)
  Receive Date: 20120517
  Receipt Date: 20120508
  Transmission Date: 20120825
  Serious: Yes (Hospitalization)
  Sender: FDA-Public Use
  Company Number: PHEH2012US007348

PATIENT
  Sex: Male
  Weight: 72 kg

DRUGS (18)
  1. GLEEVEC [Suspect]
     Dosage: 400 MG, UNK
     Route: 048
  2. BACTRIM [Concomitant]
     Dosage: 400 MG, UNK
     Route: 048
  3. ZOFRAN [Concomitant]
     Dosage: 04 MG, UNK
     Route: 048
  4. NEUPOGEN [Concomitant]
     Dosage: 480 UG, UNK
     Route: 058
  5. CELEXA [Concomitant]
     Dosage: 10 MG, UNK
     Route: 048
  6. ZANTAC [Concomitant]
     Route: 048
  7. PHOS-NAK [Concomitant]
  8. SALINEX NASAL [Concomitant]
  9. MELATONIN [Concomitant]
     Dosage: 03 MG, UNK
     Route: 048
  10. LIDOCAINE [Concomitant]
     Dosage: 03 %, UNK
  11. AMBIEN [Concomitant]
     Dosage: 05 MG, UNK
     Route: 048
  12. CALMOSEPTINE [Concomitant]
  13. SODIUM CHLORIDE [Concomitant]
     Dosage: 0.9 %, UNK
  14. MARINOL [Concomitant]
     Dosage: 05 MG, UNK
     Route: 048
  15. CLOTRIMAZOLE [Concomitant]
     Dosage: 2 %, UNK
  16. GLEEVEC [Suspect]
     Dosage: 400 MG, BID
     Route: 048
     Dates: start: 20120210
  17. DIFLUCAN [Concomitant]
     Dosage: 100 MG, UNK
  18. OXYCODONE HCL [Concomitant]
     Dosage: 05 MG, UNK
     Route: 048

REACTIONS (11)
  - RENAL IMPAIRMENT [None]
  - VOMITING [None]
  - DIARRHOEA [None]
  - EYE HAEMORRHAGE [None]
  - HEADACHE [None]
  - DEHYDRATION [None]
  - VIRAL INFECTION [None]
  - FULL BLOOD COUNT ABNORMAL [None]
  - BLOOD TEST ABNORMAL [None]
  - NAUSEA [None]
  - BLOOD CREATININE ABNORMAL [None]
